FAERS Safety Report 5255338-5 (Version None)
Quarter: 2007Q1

REPORT INFORMATION
  Report Type: 
  Country: None (occurrence: None)
  Receive Date: 20070305
  Receipt Date: 20070226
  Transmission Date: 20070707
  Serious: Yes (Hospitalization)
  Sender: FDA-Public Use
  Company Number: DE-GLAXOSMITHKLINE-B0460588A

PATIENT
  Sex: Female
  Weight: 52 kg

DRUGS (2)
  1. TOPOTECAN HYDROCHLORIDE [Suspect]
     Indication: OVARIAN CANCER
     Dosage: 2.01MG WEEKLY
     Route: 042
     Dates: start: 20070103
  2. DURAGESIC-100 [Concomitant]
     Indication: PAIN
     Dosage: 12.5UG PER DAY
     Route: 058
     Dates: start: 20060701

REACTIONS (4)
  - ANAEMIA [None]
  - HERPES ZOSTER [None]
  - LEUKOPENIA [None]
  - PYREXIA [None]
